FAERS Safety Report 10497895 (Version 3)
Quarter: 2015Q1

REPORT INFORMATION
  Report Type: Spontaneous
  Country: US (occurrence: US)
  Receive Date: 20141006
  Receipt Date: 20150126
  Transmission Date: 20150720
  Serious: Yes (Hospitalization)
  Sender: FDA-Public Use
  Company Number: US-PFIZER INC-2014271605

PATIENT
  Age: 56 Year
  Sex: Male
  Weight: 117 kg

DRUGS (20)
  1. EFFEXOR XR [Suspect]
     Active Substance: VENLAFAXINE HYDROCHLORIDE
     Indication: ANXIETY
  2. FLOMAX [Concomitant]
     Active Substance: TAMSULOSIN HYDROCHLORIDE
     Indication: SLEEP DISORDER
     Dosage: 0.4 MG (AT BED TIME), 1X/DAY
     Route: 048
  3. KLONOPIN [Concomitant]
     Active Substance: CLONAZEPAM
     Indication: DEPRESSION
     Dosage: 1 MG, 3X/DAY (MORNING, 4PM AND BEDTIME)
     Route: 048
  4. SEROQUEL XR [Concomitant]
     Active Substance: QUETIAPINE FUMARATE
     Indication: DEPRESSION
     Dosage: 800 MG, 1X/DAY (2 TABLETS OF 400MG AT BEDTIME)
     Route: 048
  5. VESICARE [Concomitant]
     Active Substance: SOLIFENACIN SUCCINATE
     Indication: URINARY INCONTINENCE
     Dosage: 5 MG, 1X/DAY
     Route: 048
  6. CHRONULAC [Concomitant]
     Active Substance: LACTULOSE
     Indication: ABDOMINAL DISCOMFORT
     Dosage: 10 G, UNK
  7. MEVACOR [Concomitant]
     Active Substance: LOVASTATIN
     Indication: DEPRESSION
     Dosage: 40 MG, 2X/DAY
     Route: 048
  8. ABILIFY [Concomitant]
     Active Substance: ARIPIPRAZOLE
     Indication: DEPRESSION
     Dosage: 15 MG, 1X/DAY
     Route: 048
  9. VITAMIN B12 [Concomitant]
     Active Substance: CYANOCOBALAMIN
     Dosage: UNK, MONTHLY
  10. LIBRAX [Concomitant]
     Active Substance: CHLORDIAZEPOXIDE HYDROCHLORIDE\CLIDINIUM BROMIDE
     Indication: DEPRESSION
     Dosage: 20MG, 3X/DAY
     Route: 048
  11. VENTOLIN HFA [Concomitant]
     Active Substance: ALBUTEROL SULFATE
     Indication: DYSPNOEA
     Dosage: 2 DF, DAILY (2 PUFFS OF 180 UG)
  12. MEVACOR [Concomitant]
     Active Substance: LOVASTATIN
     Indication: SEIZURE
  13. KEPPRA [Concomitant]
     Active Substance: LEVETIRACETAM
     Indication: DEPRESSION
     Dosage: 500 MG, 2X/DAY (MORNING AND BEDTIME)
     Route: 048
  14. KLONOPIN [Concomitant]
     Active Substance: CLONAZEPAM
     Indication: SEIZURE
  15. MEVACOR [Concomitant]
     Active Substance: LOVASTATIN
     Indication: SCHIZOPHRENIA
  16. PRISTIQ EXTENDED RELEASE [Concomitant]
     Active Substance: DESVENLAFAXINE SUCCINATE
     Dosage: UNK
  17. MEVACOR [Concomitant]
     Active Substance: LOVASTATIN
     Indication: ANXIETY
  18. EFFEXOR XR [Suspect]
     Active Substance: VENLAFAXINE HYDROCHLORIDE
     Indication: DEPRESSION
     Dosage: 150 MG, 1X/DAY
     Route: 048
  19. DILANTIN [Concomitant]
     Active Substance: PHENYTOIN
     Indication: EPILEPSY
     Dosage: 400 MG, 1X/DAY (4 CAPSULES OF 100MG, AT BED TIME)
     Route: 048
  20. KLONOPIN [Concomitant]
     Active Substance: CLONAZEPAM
     Indication: ANXIETY

REACTIONS (1)
  - Depression [Not Recovered/Not Resolved]

NARRATIVE: CASE EVENT DATE: 2014
